FAERS Safety Report 6618765-7 (Version None)
Quarter: 2010Q1

REPORT INFORMATION
  Report Type: 
  Country: None (occurrence: None)
  Receive Date: 20100302
  Receipt Date: 20100223
  Transmission Date: 20100710
  Serious: Yes (Hospitalization)
  Sender: FDA-Public Use
  Company Number: TCI2010A00128

PATIENT
  Age: 77 Year
  Sex: Female

DRUGS (9)
  1. ACTOS [Suspect]
     Indication: DIABETES MELLITUS
     Dosage: PER ORAL
     Route: 048
     Dates: end: 20091201
  2. ALLOPURINOL [Concomitant]
  3. MICARDIS [Concomitant]
  4. ENALAPRIL MALEATE [Concomitant]
  5. LIPITOR [Concomitant]
  6. AMLODIPINE BESYLATE [Concomitant]
  7. VOGLIBOSE [Concomitant]
  8. NOVOLOG [Concomitant]
  9. LANTUS [Concomitant]

REACTIONS (3)
  - BLOOD GLUCOSE INCREASED [None]
  - FALL [None]
  - FOOT FRACTURE [None]
